FAERS Safety Report 9678904 (Version 2)
Quarter: 2013Q4

REPORT INFORMATION
  Report Type: Spontaneous
  Country: US (occurrence: US)
  Receive Date: 20131108
  Receipt Date: 20131220
  Transmission Date: 20140711
  Serious: Yes (Death, Hospitalization, Other)
  Sender: FDA-Public Use
  Company Number: US-INCYTE CORPORATION-2013IN002626

PATIENT
  Age: 67 Year
  Sex: Female
  Weight: 63.5 kg

DRUGS (1)
  1. JAKAFI [Suspect]
     Indication: MYELOFIBROSIS
     Dosage: 25 MG, BID
     Route: 048
     Dates: start: 20100606, end: 201309

REACTIONS (6)
  - Death [Fatal]
  - Gastrointestinal haemorrhage [None]
  - Varices oesophageal [Unknown]
  - Pulmonary hypertension [Unknown]
  - Extramedullary haemopoiesis [Unknown]
  - Liver disorder [Unknown]
